FAERS Safety Report 18478696 (Version 3)
Quarter: 2020Q4

REPORT INFORMATION
  Report Type: Report from Study
  Country: DE (occurrence: DE)
  Receive Date: 20201109
  Receipt Date: 20201203
  Transmission Date: 20210114
  Serious: Yes (Life-Threatening, Other)
  Sender: FDA-Public Use
  Company Number: DE-CELLTRION INC.-2020DE030704

PATIENT

DRUGS (5)
  1. TRUXIMA [Suspect]
     Active Substance: RITUXIMAB-ABBS
     Indication: MARGINAL ZONE LYMPHOMA
     Dosage: 375 MG/M2, ON DAY 1 EVERY SECOND CYCLE
     Route: 042
     Dates: start: 20191218, end: 20200901
  2. COPANLISIB. [Suspect]
     Active Substance: COPANLISIB
     Dosage: 45 MG
     Route: 042
     Dates: start: 20200804, end: 20201013
  3. ACICLOVIR [Concomitant]
     Active Substance: ACYCLOVIR
  4. COPANLISIB. [Suspect]
     Active Substance: COPANLISIB
     Indication: MARGINAL ZONE LYMPHOMA
     Dosage: 60 MG
     Route: 042
     Dates: start: 20191218, end: 20200721
  5. COTRIMOXAZOL [Concomitant]
     Active Substance: SULFAMETHOXAZOLE\TRIMETHOPRIM

REACTIONS (4)
  - Neutropenia [Recovered/Resolved]
  - Leukopenia [Unknown]
  - Off label use [Unknown]
  - Product dose omission issue [Unknown]

NARRATIVE: CASE EVENT DATE: 20201027
